FAERS Safety Report 10276493 (Version 5)
Quarter: 2014Q3

REPORT INFORMATION
  Report Type: Report from Study
  Country: CA (occurrence: CA)
  Receive Date: 20140703
  Receipt Date: 20140918
  Transmission Date: 20150326
  Serious: Yes (Hospitalization, Other)
  Sender: FDA-Public Use
  Company Number: CA-ABBVIE-14P-028-1226028-00

PATIENT
  Sex: Female

DRUGS (2)
  1. HUMIRA [Suspect]
     Active Substance: ADALIMUMAB
     Route: 058
     Dates: start: 2014
  2. HUMIRA [Suspect]
     Active Substance: ADALIMUMAB
     Indication: CROHN^S DISEASE
     Route: 058
     Dates: start: 20130115, end: 20140911

REACTIONS (11)
  - Bronchitis [Not Recovered/Not Resolved]
  - Crohn^s disease [Not Recovered/Not Resolved]
  - Influenza like illness [Not Recovered/Not Resolved]
  - Weight decreased [Not Recovered/Not Resolved]
  - Abdominal pain upper [Not Recovered/Not Resolved]
  - Drug effect incomplete [Unknown]
  - Crohn^s disease [Recovering/Resolving]
  - Abdominal adhesions [Unknown]
  - Malaise [Not Recovered/Not Resolved]
  - Syncope [Recovered/Resolved]
  - Large intestinal obstruction [Recovering/Resolving]

NARRATIVE: CASE EVENT DATE: 2014
